FAERS Safety Report 8383229 (Version 15)
Quarter: 2012Q4

REPORT INFORMATION
  Report Type: 
  Country: US (occurrence: US)
  Receive Date: 20120130
  Receipt Date: 20121119
  Transmission Date: 20130627
  Serious: Yes (Hospitalization, Other)
  Sender: FDA-Public Use
  Company Number: US-PFIZER INC-2012021925

PATIENT
  Age: 83 Year
  Sex: Female
  Weight: 68 kg

DRUGS (14)
  1. XANAX [Suspect]
     Indication: NERVOUS BREAKDOWN
     Dosage: 1 mg, 3x/day
     Dates: end: 201201
  2. XANAX [Suspect]
     Indication: ANXIETY
     Dosage: UNK
     Route: 048
     Dates: end: 201207
  3. XANAX [Suspect]
     Indication: HYPERTENSION
  4. XANAX [Suspect]
     Indication: PALPITATION
  5. XANAX [Suspect]
     Indication: CHEST PAIN
  6. ALPRAZOLAM [Suspect]
     Indication: NERVOUS BREAKDOWN
     Dosage: 1 mg, 3x/day
     Dates: start: 2012
  7. ALPRAZOLAM [Suspect]
     Indication: ANXIETY
  8. ALPRAZOLAM [Suspect]
     Indication: HYPERTENSION
  9. ALPRAZOLAM [Suspect]
     Indication: PALPITATION
  10. ALPRAZOLAM [Suspect]
     Indication: CHEST PAIN
  11. FOLIC ACID [Concomitant]
     Dosage: UNK
  12. TOPROL XL [Concomitant]
     Dosage: 50 mg, UNK
  13. K-DUR 10 [Concomitant]
     Dosage: 10 mEq, 1x/day
  14. INDAPAMIDE [Concomitant]
     Dosage: 2.5 mg, 1x/day

REACTIONS (24)
  - Myocardial infarction [Recovering/Resolving]
  - Mental disorder [Unknown]
  - Thrombosis [Unknown]
  - Dyspnoea [Unknown]
  - Anxiety [Not Recovered/Not Resolved]
  - Nervousness [Recovering/Resolving]
  - Panic reaction [Unknown]
  - Hypertension [Not Recovered/Not Resolved]
  - Abasia [Unknown]
  - Depression [Unknown]
  - Palpitations [Not Recovered/Not Resolved]
  - Decreased appetite [Unknown]
  - Feeling abnormal [Unknown]
  - Physical assault [Unknown]
  - Crying [Unknown]
  - Malaise [Recovered/Resolved]
  - Mood altered [Unknown]
  - Pruritus [Unknown]
  - Pain [Unknown]
  - Hostility [Unknown]
  - Aggression [Unknown]
  - Blood cholesterol abnormal [Unknown]
  - Dizziness [Unknown]
  - Off label use [Unknown]
